FAERS Safety Report 7926962-3 (Version None)
Quarter: 2011Q4

REPORT INFORMATION
  Report Type: 
  Country: None (occurrence: None)
  Receive Date: 20111118
  Receipt Date: 20111109
  Transmission Date: 20120403
  Serious: Yes (Hospitalization)
  Sender: FDA-Public Use
  Company Number: US-JNJFOC-20111104191

PATIENT
  Sex: Female
  Weight: 99.79 kg

DRUGS (3)
  1. REMICADE [Suspect]
     Indication: RHEUMATOID ARTHRITIS
     Route: 042
     Dates: start: 20090101, end: 20110301
  2. PREDNISONE TAB [Concomitant]
     Indication: RHEUMATOID ARTHRITIS
     Route: 048
     Dates: start: 20080101
  3. LIOTHYRONINE SODIUM [Concomitant]

REACTIONS (7)
  - RHEUMATOID ARTHRITIS [None]
  - CHOLECYSTITIS [None]
  - HYPERTENSION [None]
  - GASTRIC ULCER [None]
  - ABNORMAL LOSS OF WEIGHT [None]
  - ABSCESS LIMB [None]
  - OESOPHAGITIS [None]
